FAERS Safety Report 4440980-1 (Version None)
Quarter: 2004Q3

REPORT INFORMATION
  Report Type: 
  Country: None (occurrence: None)
  Receive Date: 20040728
  Receipt Date: 20040416
  Transmission Date: 20050211
  Serious: No
  Sender: FDA-Public Use
  Company Number: USA040465204

PATIENT
  Age: 18 Year
  Sex: Male
  Weight: 60 kg

DRUGS (1)
  1. STRATTERA [Suspect]
     Indication: ATTENTION DEFICIT/HYPERACTIVITY DISORDER
     Dosage: 40 MG DAY
     Dates: start: 20040415, end: 20040415

REACTIONS (5)
  - DEPERSONALISATION [None]
  - FORMICATION [None]
  - INSOMNIA [None]
  - PANIC ATTACK [None]
  - STRESS SYMPTOMS [None]
